FAERS Safety Report 21452966 (Version 1)
Quarter: 2022Q4

REPORT INFORMATION
  Report Type: Report from Study
  Country: US (occurrence: None)
  Receive Date: 20221013
  Receipt Date: 20221013
  Transmission Date: 20230113
  Serious: Yes (Hospitalization)
  Sender: FDA-Public Use
  Company Number: US-ROCHE-3197199

PATIENT
  Age: 65 Year
  Sex: Female

DRUGS (4)
  1. BEVACIZUMAB [Suspect]
     Active Substance: BEVACIZUMAB
     Indication: Ovarian epithelial cancer
     Dosage: OVER 30-90 MIN ON DAY 1?LAST DOSE ADMINISTERED: 05/FEB/2009
     Route: 042
     Dates: start: 20081204
  2. PACLITAXEL [Suspect]
     Active Substance: PACLITAXEL
     Indication: Ovarian epithelial cancer
     Dosage: OVER 3 HRS ON DAY1
     Route: 042
     Dates: start: 20081204
  3. DOCETAXEL [Suspect]
     Active Substance: DOCETAXEL
     Indication: Ovarian epithelial cancer
     Dosage: OVER 3 HRS ON DAY1
     Route: 042
     Dates: start: 20081204
  4. CARBOPLATIN [Suspect]
     Active Substance: CARBOPLATIN
     Indication: Ovarian epithelial cancer
     Dosage: AUC 5 OVER 30 MIN ON DAY 1
     Route: 042
     Dates: start: 20081204

REACTIONS (1)
  - Blood antidiuretic hormone abnormal [Recovered/Resolved]

NARRATIVE: CASE EVENT DATE: 20090209
